FAERS Safety Report 7569247-X (Version None)
Quarter: 2011Q2

REPORT INFORMATION
  Report Type: 
  Country: None (occurrence: None)
  Receive Date: 20110623
  Receipt Date: 20110619
  Transmission Date: 20111010
  Serious: Yes (Death, Hospitalization)
  Sender: FDA-Public Use
  Company Number: PHHY2011SA47173

PATIENT
  Age: 50 Year
  Sex: Female

DRUGS (3)
  1. VOLTAREN [Suspect]
     Indication: ABDOMINAL PAIN
     Dosage: 75 MG, BID
  2. SCOPOLAMINE [Concomitant]
  3. PRIMPERAN TAB [Concomitant]

REACTIONS (5)
  - SKIN DISCOLOURATION [None]
  - GENERALISED OEDEMA [None]
  - ABDOMINAL PAIN [None]
  - OVERDOSE [None]
  - CARDIAC ARREST [None]
